FAERS Safety Report 8813683 (Version 1)
Quarter: 2012Q4

REPORT INFORMATION
  Report Type: 
  Country: FR (occurrence: FR)
  Receive Date: 20120927
  Receipt Date: 20120927
  Transmission Date: 20130627
  Serious: Yes (Hospitalization, Other)
  Sender: FDA-Public Use
  Company Number: FR-SANOFI-AVENTIS-2012SA068376

PATIENT
  Age: 75 Year
  Sex: Male

DRUGS (17)
  1. STILNOX [Suspect]
     Indication: DRUG USE FOR UNKNOWN INDICATION
     Route: 048
     Dates: start: 20090811, end: 20090812
  2. STILNOX [Suspect]
     Indication: DRUG USE FOR UNKNOWN INDICATION
     Route: 048
     Dates: start: 20090814, end: 20090815
  3. TETRAZEPAM [Suspect]
     Indication: DRUG USE FOR UNKNOWN INDICATION
     Route: 048
     Dates: start: 2008
  4. SOTALEX [Suspect]
     Indication: DRUG USE FOR UNKNOWN INDICATION
     Route: 048
     Dates: start: 20090814, end: 20090817
  5. LYRICA [Suspect]
     Indication: DRUG USE FOR UNKNOWN INDICATION
     Route: 048
     Dates: start: 200808
  6. BACLOFEN [Suspect]
     Indication: DRUG USE FOR UNKNOWN INDICATION
     Route: 048
     Dates: start: 20090804
  7. PREVISCAN [Concomitant]
     Dates: start: 20090811
  8. XATRAL [Concomitant]
  9. COZAAR [Concomitant]
  10. CIPRALAN [Concomitant]
     Dates: end: 20090813
  11. CELECTOL [Concomitant]
     Dates: end: 20090813
  12. LASILIX [Concomitant]
  13. INEXIUM [Concomitant]
  14. DAFALGAN [Concomitant]
  15. CIFLOX [Concomitant]
     Dates: start: 20090811
  16. CALCIPARINE [Concomitant]
     Dates: start: 20090810
  17. ROCEPHINE [Concomitant]
     Dates: end: 200908

REACTIONS (2)
  - Coma [Recovered/Resolved]
  - Hypotension [Recovered/Resolved]
